FAERS Safety Report 23500729 (Version 1)
Quarter: 2024Q1

REPORT INFORMATION
  Report Type: Spontaneous
  Country: CN (occurrence: None)
  Receive Date: 20240208
  Receipt Date: 20240208
  Transmission Date: 20240410
  Serious: Yes (Other)
  Sender: FDA-Public Use
  Company Number: 2024A028578

PATIENT
  Age: 14975 Day
  Sex: Male
  Weight: 80 kg

DRUGS (3)
  1. OSIMERTINIB MESYLATE [Suspect]
     Active Substance: OSIMERTINIB MESYLATE
     Indication: Therapy cessation
     Route: 048
     Dates: start: 20230302, end: 20240125
  2. OSIMERTINIB [Concomitant]
     Active Substance: OSIMERTINIB
     Dates: end: 20240125
  3. GLUTATHIONE [Concomitant]
     Active Substance: GLUTATHIONE
     Indication: Symptomatic treatment

REACTIONS (1)
  - Hepatic function abnormal [Recovering/Resolving]

NARRATIVE: CASE EVENT DATE: 20240125
